FAERS Safety Report 5004143-3 (Version None)
Quarter: 2006Q2

REPORT INFORMATION
  Report Type: 
  Country: None (occurrence: None)
  Receive Date: 20060517
  Receipt Date: 20060511
  Transmission Date: 20061013
  Serious: Yes (Other)
  Sender: FDA-Public Use
  Company Number: 2006PK01032

PATIENT
  Age: 37 Year
  Sex: Female
  Weight: 76 kg

DRUGS (3)
  1. SEROQUEL [Suspect]
     Indication: BIPOLAR DISORDER
     Route: 048
     Dates: start: 20060405
  2. TRILEPTAL [Concomitant]
     Indication: BIPOLAR DISORDER
     Route: 048
     Dates: start: 20000101
  3. TRITTICO [Concomitant]
     Indication: BIPOLAR DISORDER
     Route: 048
     Dates: start: 20010101

REACTIONS (1)
  - LEUKOPENIA [None]
